FAERS Safety Report 17231652 (Version 4)
Quarter: 2020Q2

REPORT INFORMATION
  Report Type: Spontaneous
  Country: US (occurrence: US)
  Receive Date: 20200103
  Receipt Date: 20200422
  Transmission Date: 20200713
  Serious: No
  Sender: FDA-Public Use
  Company Number: US-PFIZER INC-2019562920

PATIENT
  Age: 65 Year
  Sex: Female

DRUGS (1)
  1. XELJANZ XR [Suspect]
     Active Substance: TOFACITINIB CITRATE
     Indication: RHEUMATOID ARTHRITIS
     Dosage: 11 MG, DAILY
     Route: 048
     Dates: start: 20191211

REACTIONS (5)
  - Drug ineffective [Unknown]
  - Oral herpes [Unknown]
  - Anxiety [Unknown]
  - Immune system disorder [Unknown]
  - Malaise [Unknown]

NARRATIVE: CASE EVENT DATE: 201912
